FAERS Safety Report 10261235 (Version 2)
Quarter: 2014Q2

REPORT INFORMATION
  Report Type: Report from Study
  Country: IL (occurrence: IL)
  Receive Date: 20140626
  Receipt Date: 20140626
  Transmission Date: 20141212
  Serious: Yes (Hospitalization)
  Sender: FDA-Public Use
  Company Number: IL-009507513-1406ISR006903

PATIENT
  Age: 54 Year
  Sex: Male

DRUGS (9)
  1. VICTRELIS [Suspect]
     Indication: HEPATITIS C
     Dosage: 200 MG, 3 IN 1 DAY
     Route: 048
     Dates: start: 201311, end: 201403
  2. RIBAVIRIN [Suspect]
     Indication: HEPATITIS C
     Dosage: 200 MG, 2 IN 1 DAY
     Route: 048
     Dates: start: 201311, end: 201403
  3. PEGINTERFERON ALFA-2A [Suspect]
     Indication: HEPATITIS C
     Dosage: 180 MICROGRAM, QW
     Route: 058
     Dates: start: 201311, end: 201403
  4. ASPIRIN [Concomitant]
     Dosage: 100 MG (100 MG, 1 IN 1 D)
     Route: 048
  5. CONCOR [Concomitant]
     Dosage: 1.25 MG (1.25 MG, 1 IN 1 D)
     Route: 048
  6. ENALADEX [Concomitant]
     Dosage: 5 MG, (1 IN 1 DAY)
     Route: 048
  7. PLAVIX [Concomitant]
     Dosage: 75 MG, 1 IN 1 DAY
     Route: 048
  8. SIMOVIL [Concomitant]
     Dosage: 20 MG, 1 IN 1 DAY
     Route: 048
  9. GASTRO [Concomitant]

REACTIONS (1)
  - Pancytopenia [Recovered/Resolved]
